FAERS Safety Report 12078005 (Version 1)
Quarter: 2016Q1

REPORT INFORMATION
  Report Type: Report from Study
  Country: US (occurrence: US)
  Receive Date: 20160215
  Receipt Date: 20160215
  Transmission Date: 20160526
  Serious: Yes (Other)
  Sender: FDA-Public Use
  Company Number: US-BIOGEN-2011BI038066

PATIENT
  Age: 38 Year
  Sex: Female

DRUGS (1)
  1. TYSABRI [Suspect]
     Active Substance: NATALIZUMAB
     Indication: MULTIPLE SCLEROSIS
     Route: 042
     Dates: start: 20080908, end: 20121001

REACTIONS (7)
  - Generalised tonic-clonic seizure [Not Recovered/Not Resolved]
  - Asthenia [Recovered/Resolved]
  - Vision blurred [Not Recovered/Not Resolved]
  - Contusion [Unknown]
  - Scratch [Unknown]
  - Fall [Recovered/Resolved]
  - Dysarthria [Recovered/Resolved]

NARRATIVE: CASE EVENT DATE: 2008
